FAERS Safety Report 7105522-0 (Version None)
Quarter: 2010Q4

REPORT INFORMATION
  Report Type: 
  Country: None (occurrence: None)
  Receive Date: 20101116
  Receipt Date: 20101109
  Transmission Date: 20110411
  Serious: Yes (Other)
  Sender: FDA-Public Use
  Company Number: PL-ROCHE-739924

PATIENT
  Sex: Female
  Weight: 65.8 kg

DRUGS (1)
  1. HERCEPTIN [Suspect]
     Route: 042
     Dates: start: 20101015, end: 20101015

REACTIONS (4)
  - ANXIETY [None]
  - BLOOD PRESSURE INCREASED [None]
  - CHILLS [None]
  - LIVIDITY [None]
